FAERS Safety Report 21989289 (Version 4)
Quarter: 2023Q2

REPORT INFORMATION
  Report Type: Spontaneous
  Country: US (occurrence: US)
  Receive Date: 20230214
  Receipt Date: 20230502
  Transmission Date: 20230721
  Serious: No
  Sender: FDA-Public Use
  Company Number: US-ViiV Healthcare Limited-91582

PATIENT
  Age: 59 Year
  Sex: Male

DRUGS (4)
  1. RILPIVIRINE [Suspect]
     Active Substance: RILPIVIRINE
     Indication: HIV infection
     Dosage: UNK UNK, Z 600MG-900 MG (EVERY OTHER MONTH)
     Route: 065
     Dates: start: 20221203
  2. RILPIVIRINE [Suspect]
     Active Substance: RILPIVIRINE
     Dosage: UNK UNK, Z 600MG-900 MG (EVERY OTHER MONTH)
     Route: 065
     Dates: start: 20230202
  3. CABOTEGRAVIR [Suspect]
     Active Substance: CABOTEGRAVIR
     Indication: HIV infection
     Dosage: UNK UNK, Z 600MG-900 MG (EVERY OTHER MONTH)
     Route: 065
     Dates: start: 20221203
  4. CABOTEGRAVIR [Suspect]
     Active Substance: CABOTEGRAVIR
     Dosage: UNK UNK, Z 600MG-900 MG (EVERY OTHER MONTH)
     Route: 065
     Dates: start: 20230202

REACTIONS (2)
  - Inappropriate schedule of product administration [Recovering/Resolving]
  - Product dose omission issue [Recovering/Resolving]

NARRATIVE: CASE EVENT DATE: 20230103
